FAERS Safety Report 14492318 (Version 1)
Quarter: 2018Q1

REPORT INFORMATION
  Report Type: Spontaneous
  Country: JP (occurrence: JP)
  Receive Date: 20180206
  Receipt Date: 20180206
  Transmission Date: 20180509
  Serious: Yes (Death, Other)
  Sender: FDA-Public Use
  Company Number: JP-PFIZER INC-2018049814

PATIENT
  Age: 45 Year
  Sex: Male

DRUGS (2)
  1. INLYTA [Suspect]
     Active Substance: AXITINIB
     Indication: RENAL CELL CARCINOMA
     Dosage: UNK
     Route: 048
     Dates: start: 2015
  2. NEXAVAR [Concomitant]
     Active Substance: SORAFENIB
     Dosage: UNK

REACTIONS (3)
  - Nephrotic syndrome [Unknown]
  - Neoplasm progression [Fatal]
  - Oedema [Unknown]
